FAERS Safety Report 13404652 (Version 1)
Quarter: 2017Q2

REPORT INFORMATION
  Report Type: Spontaneous
  Country: US (occurrence: US)
  Receive Date: 20170405
  Receipt Date: 20170405
  Transmission Date: 20170830
  Serious: Yes (Other)
  Sender: FDA-Public Use
  Company Number: None

PATIENT
  Age: 93 Year
  Sex: Female
  Weight: 67.19 kg

DRUGS (1)
  1. FORTEO [Suspect]
     Active Substance: TERIPARATIDE
     Indication: SENILE OSTEOPOROSIS
     Route: 058
     Dates: start: 20160308

REACTIONS (8)
  - Paraesthesia [None]
  - Balance disorder [None]
  - Lip swelling [None]
  - Mouth swelling [None]
  - Erythema [None]
  - Blood calcium increased [None]
  - Pruritus [None]
  - Burning sensation [None]

NARRATIVE: CASE EVENT DATE: 20170329
